FAERS Safety Report 8218673-4 (Version None)
Quarter: 2012Q1

REPORT INFORMATION
  Report Type: 
  Country: None (occurrence: None)
  Receive Date: 20120319
  Receipt Date: 20120220
  Transmission Date: 20120608
  Serious: Yes (Other)
  Sender: FDA-Public Use
  Company Number: PHFR2011IE007346

PATIENT
  Sex: Male

DRUGS (4)
  1. CLOZARIL [Suspect]
     Indication: SCHIZOPHRENIA, PARANOID TYPE
     Dosage: 400 MG
     Route: 048
     Dates: start: 20111118
  2. ARIPIPRAZOLE [Concomitant]
     Indication: PSYCHOTIC DISORDER
     Dosage: 30 MG, UNK
     Route: 048
  3. SERTRALINE HYDROCHLORIDE [Concomitant]
     Indication: DEPRESSION
     Dosage: 150 MG, UNK
  4. GLUCOPHAGE [Concomitant]
     Indication: APPETITE DISORDER
     Dosage: 500 MG, UNK

REACTIONS (10)
  - GASTROINTESTINAL INFECTION [None]
  - BODY TEMPERATURE INCREASED [None]
  - URINARY TRACT INFECTION [None]
  - VOMITING [None]
  - LOWER RESPIRATORY TRACT INFECTION [None]
  - BLOOD URINE PRESENT [None]
  - C-REACTIVE PROTEIN INCREASED [None]
  - NAUSEA [None]
  - WHITE BLOOD CELL COUNT INCREASED [None]
  - NEUTROPHIL COUNT INCREASED [None]
